FAERS Safety Report 4641137-1 (Version None)
Quarter: 2005Q2

REPORT INFORMATION
  Report Type: 
  Country: None (occurrence: None)
  Receive Date: 20050421
  Receipt Date: 20050323
  Transmission Date: 20051028
  Serious: No
  Sender: FDA-Public Use
  Company Number: US-GLAXOSMITHKLINE-A0551027A

PATIENT
  Age: 53 Year
  Sex: Male

DRUGS (6)
  1. LEXIVA [Suspect]
     Indication: HIV INFECTION
     Dosage: 1400MG TWICE PER DAY
     Route: 048
     Dates: start: 20050315, end: 20050322
  2. RETROVIR [Suspect]
     Indication: HIV INFECTION
     Route: 065
     Dates: start: 20050315
  3. EPIVIR [Concomitant]
  4. TENOFOVIR [Concomitant]
  5. IMODIUM [Concomitant]
  6. CLARITIN [Concomitant]

REACTIONS (3)
  - DYSARTHRIA [None]
  - HYPOAESTHESIA ORAL [None]
  - PARAESTHESIA ORAL [None]
